FAERS Safety Report 7183075-9 (Version None)
Quarter: 2010Q4

REPORT INFORMATION
  Report Type: 
  Country: None (occurrence: None)
  Receive Date: 20101222
  Receipt Date: 20100719
  Transmission Date: 20110411
  Serious: No
  Sender: FDA-Public Use
  Company Number: A0871164A

PATIENT
  Age: 69 Year
  Sex: Female

DRUGS (4)
  1. RYTHMOL [Suspect]
     Indication: ARRHYTHMIA
     Dosage: 225MG THREE TIMES PER DAY
     Route: 048
     Dates: start: 19800101
  2. INDAPAMIDE [Concomitant]
  3. COZAAR [Concomitant]
  4. LANOXIN [Concomitant]

REACTIONS (2)
  - DRUG INEFFECTIVE [None]
  - HEART RATE IRREGULAR [None]
